FAERS Safety Report 9934919 (Version 1)
Quarter: 2014Q1

REPORT INFORMATION
  Report Type: Spontaneous
  Country: US (occurrence: US)
  Receive Date: 20140228
  Receipt Date: 20140228
  Transmission Date: 20141002
  Serious: No
  Sender: FDA-Public Use
  Company Number: US-ASTRAZENECA-2013SE66200

PATIENT
  Age: 58 Year
  Sex: Male
  Weight: 90.7 kg

DRUGS (3)
  1. TOPROL XL [Suspect]
     Indication: HEART RATE ABNORMAL
     Route: 048
  2. CRESTOR [Suspect]
     Indication: BLOOD CHOLESTEROL ABNORMAL
     Route: 048
  3. METFORMIN [Concomitant]
     Indication: BLOOD GLUCOSE ABNORMAL

REACTIONS (2)
  - Fatigue [Unknown]
  - Off label use [Unknown]
